FAERS Safety Report 11243073 (Version 3)
Quarter: 2015Q3

REPORT INFORMATION
  Report Type: Spontaneous
  Country: PE (occurrence: PE)
  Receive Date: 20150707
  Receipt Date: 20150925
  Transmission Date: 20151125
  Serious: Yes (Other)
  Sender: FDA-Public Use
  Company Number: PE-PFIZER INC-2015219191

PATIENT
  Age: 70 Year
  Sex: Female

DRUGS (2)
  1. XALATAN [Suspect]
     Active Substance: LATANOPROST
     Dosage: 1 GTT, DAILY ON EACH EYE
     Route: 047
  2. XALATAN [Suspect]
     Active Substance: LATANOPROST
     Dosage: 1 GTT, DAILY ON LEFT EYE
     Route: 047

REACTIONS (2)
  - Eye irritation [Not Recovered/Not Resolved]
  - Cataract [Recovered/Resolved]
